FAERS Safety Report 4615866-X (Version None)
Quarter: 2005Q2

REPORT INFORMATION
  Report Type: 
  Country: None (occurrence: None)
  Receive Date: 20050311
  Receipt Date: 20041105
  Transmission Date: 20051028
  Serious: No
  Sender: FDA-Public Use
  Company Number: 2004-BP-11394BP

PATIENT
  Age: 78 Year
  Sex: Female

DRUGS (9)
  1. SPIRIVA [Suspect]
     Indication: CHRONIC OBSTRUCTIVE PULMONARY DISEASE
     Dosage: 18 MCG (18 MCG), IH
     Route: 055
     Dates: start: 20041018
  2. CELEBREX [Suspect]
     Indication: RHEUMATOID ARTHRITIS
     Dates: start: 20041018
  3. AVALIDE (KARVEA HCT) [Concomitant]
  4. ACETYLSALICYLIC ACID SRT [Concomitant]
  5. PREDNISONE [Concomitant]
  6. BETOPIC S [Concomitant]
  7. FLORAZEPAM [Concomitant]
  8. ASECOL [Concomitant]
  9. VIOXX [Suspect]
     Indication: RHEUMATOID ARTHRITIS
     Dates: end: 20041018

REACTIONS (6)
  - ASTHENIA [None]
  - HEADACHE [None]
  - HYPOAESTHESIA ORAL [None]
  - NAUSEA [None]
  - PARAESTHESIA ORAL [None]
  - TRANSIENT ISCHAEMIC ATTACK [None]
